FAERS Safety Report 4667354-2 (Version None)
Quarter: 2005Q2

REPORT INFORMATION
  Report Type: 
  Country: None (occurrence: None)
  Receive Date: 20050519
  Receipt Date: 20050519
  Transmission Date: 20051028
  Serious: No
  Sender: FDA-Public Use
  Company Number: None

PATIENT
  Age: 64 Year
  Sex: Male

DRUGS (1)
  1. CARISOPRODOL [Suspect]
     Dosage: TWO OR THREE DAILY AS NEEDED
     Dates: start: 20050510

REACTIONS (1)
  - DRUG EFFECT DECREASED [None]
